FAERS Safety Report 24386164 (Version 2)
Quarter: 2025Q3

REPORT INFORMATION
  Report Type: Spontaneous
  Country: EU (occurrence: EU)
  Receive Date: 20241001
  Receipt Date: 20250810
  Transmission Date: 20251020
  Serious: Yes (Other)
  Sender: ALEXION PHARMACEUTICALS
  Company Number: EU-ALXN-202409GLO005255FR

PATIENT
  Age: 24 Year
  Sex: Female

DRUGS (11)
  1. SOLIRIS [Suspect]
     Active Substance: ECULIZUMAB
     Indication: Paroxysmal nocturnal haemoglobinuria
     Dosage: 1800 MILLIGRAM, QW (900 MG, QW2)
     Dates: start: 20080709
  2. SOLIRIS [Suspect]
     Active Substance: ECULIZUMAB
  3. NEORAL [Suspect]
     Active Substance: CYCLOSPORINE
     Indication: Paroxysmal nocturnal haemoglobinuria
     Route: 065
  4. NEORAL [Suspect]
     Active Substance: CYCLOSPORINE
     Dosage: 200 MILLIGRAM, QD (100 MG, BID)
     Route: 065
     Dates: start: 200705
  5. NEORAL [Suspect]
     Active Substance: CYCLOSPORINE
     Route: 065
  6. NEORAL [Suspect]
     Active Substance: CYCLOSPORINE
     Route: 065
  7. EPOETIN BETA [Concomitant]
     Active Substance: ERYTHROPOIETIN
     Dosage: 3000 INTERNATIONAL UNIT, QW
     Dates: start: 201001
  8. Previscan [Concomitant]
  9. SERETIDE [Concomitant]
     Active Substance: FLUTICASONE PROPIONATE\SALMETEROL XINAFOATE
  10. INIPOMP [Concomitant]
     Active Substance: PANTOPRAZOLE SODIUM
     Dosage: 20 MILLIGRAM, QD
  11. FOLIC ACID [Concomitant]
     Active Substance: FOLIC ACID
     Route: 065

REACTIONS (3)
  - Breast pain [Unknown]
  - Breast cyst [Not Recovered/Not Resolved]
  - Fibroadenoma of breast [Not Recovered/Not Resolved]

NARRATIVE: CASE EVENT DATE: 20090914
